FAERS Safety Report 4418101-0 (Version None)
Quarter: 2004Q3

REPORT INFORMATION
  Report Type: 
  Country: None (occurrence: None)
  Receive Date: 20040806
  Receipt Date: 20040806
  Transmission Date: 20050211
  Serious: No
  Sender: FDA-Public Use
  Company Number: None

PATIENT
  Sex: Male
  Weight: 100.2449 kg

DRUGS (2)
  1. TENORMIN 50 MG 1 PO QD [Suspect]
     Indication: HYPERTENSION
     Dosage: ONE QD PO
     Route: 048
  2. MONOPRIL [Suspect]
     Dosage: 20 MG 1 PO QD

REACTIONS (2)
  - BLOOD PRESSURE INADEQUATELY CONTROLLED [None]
  - PHARMACEUTICAL PRODUCT COMPLAINT [None]
